FAERS Safety Report 16309843 (Version 1)
Quarter: 2019Q2

REPORT INFORMATION
  Report Type: Spontaneous
  Country: US (occurrence: US)
  Receive Date: 20190514
  Receipt Date: 20190514
  Transmission Date: 20190711
  Serious: No
  Sender: FDA-Public Use
  Company Number: US-JUBILANT CADISTA PHARMACEUTICALS-2018JUB00233

PATIENT
  Age: 65 Year
  Sex: Female
  Weight: 63.95 kg

DRUGS (3)
  1. VALACYCLOVIR HYDROCHLORIDE. [Suspect]
     Active Substance: VALACYCLOVIR HYDROCHLORIDE
     Indication: HERPES ZOSTER
     Dosage: 1 G, ONCE
     Route: 048
     Dates: start: 20180611, end: 20180611
  2. VALACYCLOVIR HYDROCHLORIDE. [Suspect]
     Active Substance: VALACYCLOVIR HYDROCHLORIDE
     Dosage: 1 G, ONCE
     Route: 048
     Dates: start: 20180612, end: 20180612
  3. HALDOL [Concomitant]
     Active Substance: HALOPERIDOL
     Dosage: 5 MG, 1X/DAY
     Dates: start: 1988

REACTIONS (2)
  - Skin disorder [Not Recovered/Not Resolved]
  - Vasodilatation [Not Recovered/Not Resolved]

NARRATIVE: CASE EVENT DATE: 20180612
